FAERS Safety Report 8346806-8 (Version None)
Quarter: 2012Q2

REPORT INFORMATION
  Report Type: 
  Country: None (occurrence: None)
  Receive Date: 20120509
  Receipt Date: 20110314
  Transmission Date: 20120825
  Serious: No
  Sender: FDA-Public Use
  Company Number: US-TEVA-2011001175

PATIENT
  Sex: Male
  Weight: 81.266 kg

DRUGS (10)
  1. CLONAZEPAM [Concomitant]
     Dates: start: 20070101
  2. SIMVASTATIN [Concomitant]
     Dates: start: 20050101
  3. FLOMAX [Concomitant]
     Dates: start: 20050101
  4. ASPIRIN [Concomitant]
     Dates: start: 20010101
  5. ZOLPIDEM [Concomitant]
     Dates: start: 20060101
  6. TREANDA [Suspect]
     Indication: NON-HODGKIN'S LYMPHOMA
     Route: 042
     Dates: start: 20110307, end: 20110308
  7. ALLOPURINOL [Concomitant]
     Dates: start: 20110307
  8. FISH OIL [Concomitant]
  9. TYLENOL ARTHRITIS [Concomitant]
     Dates: start: 20040101
  10. MULTI-VITAMINS [Concomitant]

REACTIONS (2)
  - NOCTURIA [None]
  - FATIGUE [None]
